FAERS Safety Report 14270180 (Version 2)
Quarter: 2018Q1

REPORT INFORMATION
  Report Type: Spontaneous
  Country: JP (occurrence: JP)
  Receive Date: 20171211
  Receipt Date: 20180227
  Transmission Date: 20180508
  Serious: Yes (Death, Hospitalization)
  Sender: FDA-Public Use
  Company Number: JP-PFIZER INC-2017331346

PATIENT
  Age: 6 Decade
  Sex: Male

DRUGS (1)
  1. SUTENT [Suspect]
     Active Substance: SUNITINIB MALATE
     Indication: RENAL CELL CARCINOMA
     Dosage: UNK, CYCLIC (2-WEEK-ON AND 1-WEEK-OFF)
     Route: 048
     Dates: start: 201705, end: 2017

REACTIONS (2)
  - Neoplasm progression [Fatal]
  - Haematotoxicity [Unknown]

NARRATIVE: CASE EVENT DATE: 2017
